FAERS Safety Report 25912405 (Version 1)
Quarter: 2025Q4

REPORT INFORMATION
  Report Type: Spontaneous
  Country: CA (occurrence: CA)
  Receive Date: 20251013
  Receipt Date: 20251013
  Transmission Date: 20260118
  Serious: Yes (Hospitalization, Other)
  Sender: CELLTRION
  Company Number: CA-CELLTRION INC.-2025CA036311

PATIENT

DRUGS (5)
  1. INFLIXIMAB [Suspect]
     Active Substance: INFLIXIMAB
     Indication: Rheumatoid arthritis
     Dosage: 600 MILLIGRAM
     Route: 042
  2. INFLIXIMAB [Suspect]
     Active Substance: INFLIXIMAB
     Dosage: 600 MILLIGRAM
     Route: 042
  3. ACETAMINOPHEN [Concomitant]
     Active Substance: ACETAMINOPHEN
     Dosage: 1 DOSAGE FORM
  4. GLYBURIDE [Concomitant]
     Active Substance: GLYBURIDE
     Dosage: 1 DOSAGE FORM
  5. RAMIPRIL [Concomitant]
     Active Substance: RAMIPRIL
     Dosage: 1 DOSAGE FORM

REACTIONS (2)
  - Post procedural fever [Recovering/Resolving]
  - Nephrolithiasis [Recovering/Resolving]
